FAERS Safety Report 6497306-1 (Version None)
Quarter: 2009Q4

REPORT INFORMATION
  Report Type: 
  Country: None (occurrence: None)
  Receive Date: 20091215
  Receipt Date: 20090828
  Transmission Date: 20100525
  Serious: No
  Sender: FDA-Public Use
  Company Number: A0804857A

PATIENT
  Age: 69 Year
  Sex: Male

DRUGS (20)
  1. AVODART [Suspect]
     Indication: BENIGN PROSTATIC HYPERPLASIA
     Dosage: .5MG PER DAY
     Route: 048
     Dates: start: 20090814
  2. ANDROGEL [Concomitant]
  3. LYRICA [Concomitant]
  4. BUPROPION HCL [Concomitant]
  5. ATENOLOL [Concomitant]
  6. FEXOFENADINE [Concomitant]
  7. SYNTHROID [Concomitant]
  8. KLOR-CON [Concomitant]
  9. OXYCODONE [Concomitant]
  10. PROVIGIL [Concomitant]
  11. NEXIUM [Concomitant]
  12. LEXAPRO [Concomitant]
  13. METHADONE [Concomitant]
  14. MIRAPEX [Concomitant]
  15. HYZAAR [Concomitant]
  16. ETODOLAC [Concomitant]
  17. ASPIRIN [Concomitant]
  18. ZOLPIDEM [Concomitant]
  19. ALPRAZOLAM [Concomitant]
  20. GENOTROPIN [Concomitant]

REACTIONS (1)
  - DRUG INEFFECTIVE [None]
